FAERS Safety Report 8047094-2 (Version None)
Quarter: 2012Q1

REPORT INFORMATION
  Report Type: 
  Country: None (occurrence: None)
  Receive Date: 20120116
  Receipt Date: 20120110
  Transmission Date: 20120608
  Serious: Yes (Life-Threatening, Other)
  Sender: FDA-Public Use
  Company Number: DE-BRISTOL-MYERS SQUIBB COMPANY-16310674

PATIENT
  Age: 71 Year
  Sex: Male
  Weight: 69 kg

DRUGS (9)
  1. MOUTHWASH [Concomitant]
  2. GLEEVEC [Concomitant]
  3. SPRYCEL [Suspect]
     Indication: ACUTE LYMPHOCYTIC LEUKAEMIA
     Dates: start: 20110901, end: 20111125
  4. PANTOPRAZOLE SODIUM [Concomitant]
     Indication: PROPHYLAXIS
     Dates: start: 20110901
  5. AMPHOTERICIN B [Concomitant]
     Dosage: 1 DF= 3*2 PIPETTES
  6. METHOTREXATE [Concomitant]
     Dosage: BODY SURFACE, LASTP: 25NOV11. ALSO 20MG/KG
     Route: 042
  7. VERGENTAN [Concomitant]
  8. COTRIM DS [Concomitant]
     Indication: INFECTION PROPHYLAXIS
     Dosage: TUESDAYS AND FRIDAYS 2 PER DAY
  9. PURINETHOL [Concomitant]

REACTIONS (7)
  - DECREASED APPETITE [None]
  - SUBDURAL HAEMATOMA [None]
  - GENERAL PHYSICAL HEALTH DETERIORATION [None]
  - VERTIGO [None]
  - NAUSEA [None]
  - ASTHENIA [None]
  - CEREBRAL DISORDER [None]
